FAERS Safety Report 15061198 (Version 1)
Quarter: 2018Q2

REPORT INFORMATION
  Report Type: Spontaneous
  Country: US (occurrence: US)
  Receive Date: 20180625
  Receipt Date: 20180625
  Transmission Date: 20180711
  Serious: Yes (Hospitalization)
  Sender: FDA-Public Use
  Company Number: US-ROCHE-1985950

PATIENT
  Age: 62 Year
  Sex: Female

DRUGS (2)
  1. XELODA [Suspect]
     Active Substance: CAPECITABINE
     Indication: METASTASES TO LIVER
     Dosage: BID FOR 14 DAYS AND 7 DAYS OFF
     Route: 048
  2. XELODA [Suspect]
     Active Substance: CAPECITABINE
     Indication: CHOLANGIOCARCINOMA

REACTIONS (1)
  - Nausea [Unknown]

NARRATIVE: CASE EVENT DATE: 20170825
